FAERS Safety Report 23959725 (Version 2)
Quarter: 2024Q2

REPORT INFORMATION
  Report Type: Spontaneous
  Country: US (occurrence: US)
  Receive Date: 20240611
  Receipt Date: 20240616
  Transmission Date: 20240716
  Serious: Yes (Life-Threatening, Hospitalization, Other)
  Sender: FDA-Public Use
  Company Number: US-MLMSERVICE-20240522-PI072453-00108-1

PATIENT
  Age: 34 Year
  Sex: Male

DRUGS (6)
  1. CLOZAPINE [Interacting]
     Active Substance: CLOZAPINE
     Indication: Bipolar disorder
     Dosage: 100 MILLIGRAM, ONCE A DAY
     Route: 065
  2. CLOZAPINE [Interacting]
     Active Substance: CLOZAPINE
     Indication: Extrapyramidal disorder
     Dosage: 450 MILLIGRAM, ONCE A DAY, TITRATED OVER 3 MONTHS
     Route: 065
  3. QUETIAPINE [Interacting]
     Active Substance: QUETIAPINE
     Indication: Bipolar disorder
     Dosage: 400 MILLIGRAM, TWO TIMES A DAY
     Route: 065
  4. QUETIAPINE [Interacting]
     Active Substance: QUETIAPINE
     Indication: Extrapyramidal disorder
  5. BENZTROPINE [Interacting]
     Active Substance: BENZTROPINE
     Indication: Extrapyramidal disorder
     Dosage: UNK
     Route: 065
  6. SENNA [Concomitant]
     Active Substance: SENNA LEAF\SENNOSIDES\SENNOSIDES A AND B
     Indication: Constipation
     Dosage: UNK
     Route: 065

REACTIONS (7)
  - Septic shock [Recovering/Resolving]
  - Clostridium difficile infection [Recovering/Resolving]
  - Intestinal obstruction [Recovering/Resolving]
  - Faecalith [Recovering/Resolving]
  - Gastrointestinal hypomotility [Recovering/Resolving]
  - Drug ineffective [Unknown]
  - Drug interaction [Unknown]
